FAERS Safety Report 25546843 (Version 1)
Quarter: 2025Q3

REPORT INFORMATION
  Report Type: Spontaneous
  Country: AU (occurrence: AU)
  Receive Date: 20250714
  Receipt Date: 20250714
  Transmission Date: 20251021
  Serious: Yes (Hospitalization, Other)
  Sender: COLLEGIUM PHARMACEUTICAL
  Company Number: AU-GRUNENTHAL-2025-109938

PATIENT
  Age: 44 Year
  Sex: Female

DRUGS (1)
  1. NUCYNTA [Suspect]
     Active Substance: TAPENTADOL HYDROCHLORIDE
     Indication: Product used for unknown indication
     Route: 048
     Dates: start: 20250617, end: 20250619

REACTIONS (1)
  - Delirium [Unknown]

NARRATIVE: CASE EVENT DATE: 20250618
